FAERS Safety Report 8590380 (Version 4)
Quarter: 2013Q3

REPORT INFORMATION
  Report Type: Report from Study
  Country: NL (occurrence: NL)
  Receive Date: 20120601
  Receipt Date: 20130828
  Transmission Date: 20140515
  Serious: Yes (Hospitalization)
  Sender: FDA-Public Use
  Company Number: PHHO2009NL05955

PATIENT
  Age: 62 Year
  Sex: Male
  Weight: 99 kg

DRUGS (7)
  1. ALISKIREN [Suspect]
     Indication: CARDIOVASCULAR DISORDER
     Route: 048
     Dates: start: 20080507
  2. PREDNISOLONE [Suspect]
     Indication: SARCOIDOSIS
     Dosage: 40 MG, QD
     Route: 048
     Dates: start: 201009, end: 20100913
  3. AMLODIPINE [Concomitant]
     Indication: HYPERTENSION
     Dosage: 10 MG, ONCE/SINGLE
     Dates: start: 19920101
  4. AMLODIPINE [Concomitant]
     Indication: CARDIAC FAILURE
  5. FUROSEMIDE [Concomitant]
     Indication: HYPERTENSION
     Dosage: 20 MG, ONCE/SINGLE
     Dates: start: 20080701
  6. FUROSEMIDE [Concomitant]
     Indication: CARDIAC FAILURE
  7. ATORVASTATIN [Concomitant]
     Indication: BLOOD CHOLESTEROL
     Dosage: 20 MG, ONCE/SINGLE
     Dates: start: 20080401

REACTIONS (6)
  - Acute myocardial infarction [Recovered/Resolved]
  - Chest pain [Recovered/Resolved]
  - Angina pectoris [Recovered/Resolved]
  - Atrial fibrillation [Recovered/Resolved]
  - Atrial flutter [Recovered/Resolved]
  - Coronary artery disease [Recovered/Resolved]
